FAERS Safety Report 20960838 (Version 1)
Quarter: 2022Q2

REPORT INFORMATION
  Report Type: Report from Study
  Country: SA (occurrence: SA)
  Receive Date: 20220615
  Receipt Date: 20220615
  Transmission Date: 20220721
  Serious: Yes (Death, Hospitalization)
  Sender: FDA-Public Use
  Company Number: SA-JNJFOC-20220610919

PATIENT
  Age: 48 Year
  Sex: Female

DRUGS (1)
  1. REMICADE [Suspect]
     Active Substance: INFLIXIMAB
     Indication: Crohn^s disease
     Route: 041
     Dates: start: 20210614

REACTIONS (3)
  - Death [Fatal]
  - Colectomy [Unknown]
  - Post procedural complication [Unknown]

NARRATIVE: CASE EVENT DATE: 20220401
